FAERS Safety Report 15234686 (Version 1)
Quarter: 2018Q3

REPORT INFORMATION
  Report Type: Spontaneous
  Country: US (occurrence: US)
  Receive Date: 20180803
  Receipt Date: 20180803
  Transmission Date: 20181010
  Serious: Yes (Other)
  Sender: FDA-Public Use
  Company Number: US-BION-007343

PATIENT
  Sex: Male
  Weight: 61 kg

DRUGS (4)
  1. ALEVE [Suspect]
     Active Substance: NAPROXEN SODIUM
     Indication: PAIN
     Dosage: 1 TWICE A DAY AS NEEDED
     Route: 048
  2. QUINAPRIL. [Concomitant]
     Active Substance: QUINAPRIL
  3. FLOMAX [Concomitant]
     Active Substance: TAMSULOSIN HYDROCHLORIDE
  4. IBUPROFEN. [Suspect]
     Active Substance: IBUPROFEN
     Indication: PAIN

REACTIONS (3)
  - Hepatic steatosis [Unknown]
  - Weight decreased [Unknown]
  - Haematochezia [Not Recovered/Not Resolved]
